FAERS Safety Report 4439542-1 (Version None)
Quarter: 2004Q3

REPORT INFORMATION
  Report Type: 
  Country: None (occurrence: None)
  Receive Date: 20040901
  Receipt Date: 20040901
  Transmission Date: 20050211
  Serious: Yes (Hospitalization)
  Sender: FDA-Public Use
  Company Number: None

PATIENT
  Sex: Male
  Weight: 127.0072 kg

DRUGS (9)
  1. TEGRETOL [Suspect]
     Indication: POST HERPETIC NEURALGIA
     Dosage: PO [PRIOR TO ADMISSION]
     Route: 048
  2. TIAZAC [Concomitant]
  3. DEMADEX [Concomitant]
  4. K-DUR 10 [Concomitant]
  5. ASPIRIN [Concomitant]
  6. COLACE [Concomitant]
  7. DURAGESIC [Concomitant]
  8. NEURONTIN [Concomitant]
  9. FAMVIR [Concomitant]

REACTIONS (2)
  - ASTHENIA [None]
  - DYSARTHRIA [None]
